FAERS Safety Report 25537465 (Version 1)
Quarter: 2025Q3

REPORT INFORMATION
  Report Type: Spontaneous
  Country: GB (occurrence: GB)
  Receive Date: 20250710
  Receipt Date: 20250710
  Transmission Date: 20251021
  Serious: Yes (Other)
  Sender: TEVA
  Company Number: GB-BRISTOL-MYERS SQUIBB COMPANY-2025-091038

PATIENT
  Age: 54 Year
  Sex: Male

DRUGS (25)
  1. DEXAMETHASONE [Suspect]
     Active Substance: DEXAMETHASONE
     Indication: Plasma cell myeloma
     Dosage: DURATION: 14 DAYS
     Route: 048
     Dates: start: 20221219, end: 20230101
  2. TOLODODEKIN ALFA [Suspect]
     Active Substance: TOLODODEKIN ALFA
     Indication: Plasma cell myeloma
     Route: 058
     Dates: start: 20220808, end: 20221213
  3. ALLOPURINOL [Concomitant]
     Active Substance: ALLOPURINOL
     Indication: Prophylaxis
     Dosage: DAILY DOSAGE: 300MG
     Route: 048
     Dates: start: 20220808
  4. VITAMIN B12 [Concomitant]
     Active Substance: CYANOCOBALAMIN
     Indication: Skin disorder
     Dosage: DAILY DOSAGE:50UG
     Route: 048
     Dates: start: 20220831
  5. BENZYDAMINE [Concomitant]
     Active Substance: BENZYDAMINE
     Indication: Oral dysaesthesia
     Route: 048
     Dates: start: 20220817
  6. BUDESONIDE [Concomitant]
     Active Substance: BUDESONIDE
     Indication: Prophylaxis
     Route: 048
     Dates: start: 20221031, end: 20221219
  7. HYDROCORTISONE [Concomitant]
     Active Substance: HYDROCORTISONE
     Indication: Skin disorder
     Dosage: DAILY DOSAGE: 1 DOSAGE FORM
     Route: 061
     Dates: start: 20220906, end: 20221219
  8. ACETAMINOPHEN [Concomitant]
     Active Substance: ACETAMINOPHEN
     Indication: Oesophageal pain
     Route: 048
     Dates: start: 20190101
  9. AMILORIDE [Concomitant]
     Active Substance: AMILORIDE
     Indication: Electrolyte substitution therapy
     Dosage: DAILY DOSAGE: 10MG; DURATION: 15 DAYS
     Route: 048
     Dates: start: 20221207, end: 20221221
  10. CYCLIZINE [Concomitant]
     Active Substance: CYCLIZINE
     Indication: Prophylaxis of nausea and vomiting
     Route: 048
     Dates: start: 20220808
  11. AMOXICILLIN\CLAVULANATE POTASSIUM [Concomitant]
     Active Substance: AMOXICILLIN\CLAVULANATE POTASSIUM
     Indication: Infection prophylaxis
     Route: 042
     Dates: start: 20220818
  12. TALQUETAMAB [Suspect]
     Active Substance: TALQUETAMAB
     Indication: Plasma cell myeloma
     Route: 058
     Dates: start: 20220809, end: 20221213
  13. OXYCODONE [Concomitant]
     Active Substance: OXYCODONE
     Indication: Pain prophylaxis
     Route: 058
     Dates: start: 20190101
  14. OXYCODONE HYDROCHLORIDE [Concomitant]
     Active Substance: OXYCODONE HYDROCHLORIDE
     Indication: Pain prophylaxis
     Route: 048
     Dates: start: 20220827
  15. FLUCONAZOLE [Concomitant]
     Active Substance: FLUCONAZOLE
     Indication: Antifungal prophylaxis
     Route: 048
     Dates: start: 20220808
  16. LENALIDOMIDE [Suspect]
     Active Substance: LENALIDOMIDE
     Indication: Plasma cell myeloma
     Route: 048
     Dates: start: 20220906, end: 20221218
  17. COTRIMOXAZOLE [Concomitant]
     Active Substance: SULFAMETHOXAZOLE\TRIMETHOPRIM
     Indication: Antibiotic prophylaxis
     Route: 048
     Dates: start: 20180101
  18. ACYCLOVIR [Concomitant]
     Active Substance: ACYCLOVIR
     Indication: Antiviral prophylaxis
     Route: 048
     Dates: start: 20180101
  19. LOPERAMIDE [Concomitant]
     Active Substance: LOPERAMIDE
     Indication: Diarrhoea
     Route: 048
     Dates: start: 20221206
  20. ALBUTEROL [Concomitant]
     Active Substance: ALBUTEROL
     Indication: Wheezing
     Route: 048
     Dates: start: 20221114
  21. ZOPICLONE [Concomitant]
     Active Substance: ZOPICLONE
     Indication: Insomnia
     Route: 048
     Dates: start: 20210101
  22. LANSOPRAZOLE [Concomitant]
     Active Substance: LANSOPRAZOLE
     Indication: Gastrooesophageal reflux prophylaxis
     Route: 048
     Dates: start: 20220913
  23. PENICILLIN V [Concomitant]
     Active Substance: PENICILLIN V
     Indication: Infection prophylaxis
     Dosage: FREQUENCY:BID
     Route: 048
     Dates: start: 20221208
  24. SERTRALINE [Concomitant]
     Active Substance: SERTRALINE HYDROCHLORIDE
     Indication: Depression
     Route: 048
     Dates: start: 20200101
  25. FRAGMIN [Concomitant]
     Active Substance: DALTEPARIN SODIUM
     Indication: Thrombosis prophylaxis
     Route: 058
     Dates: start: 20220808

REACTIONS (1)
  - Lower respiratory tract infection [Recovered/Resolved]

NARRATIVE: CASE EVENT DATE: 20230101
